FAERS Safety Report 14609387 (Version 1)
Quarter: 2018Q1

REPORT INFORMATION
  Report Type: Spontaneous
  Country: US (occurrence: US)
  Receive Date: 20180307
  Receipt Date: 20180307
  Transmission Date: 20180509
  Serious: Yes (Hospitalization)
  Sender: FDA-Public Use
  Company Number: US-ASTRAZENECA-2018SE25998

PATIENT
  Age: 45 Year
  Sex: Male
  Weight: 88 kg

DRUGS (12)
  1. METOPROLOL SUCCINATE. [Suspect]
     Active Substance: METOPROLOL SUCCINATE
     Indication: CARDIAC DISORDER
     Route: 048
     Dates: start: 2001
  2. VITAMIN D [Concomitant]
     Active Substance: CHOLECALCIFEROL
     Indication: SUPPLEMENTATION THERAPY
     Route: 048
     Dates: start: 2017
  3. ALPRAZOLAM. [Concomitant]
     Active Substance: ALPRAZOLAM
     Indication: ANXIETY
     Route: 048
     Dates: start: 2011
  4. MAGNESIUM [Concomitant]
     Active Substance: MAGNESIUM
     Indication: BLOOD PRESSURE ABNORMAL
     Dosage: 100MG WITH OLIVE LEAF EXTRACT 1000MG
     Dates: start: 201801
  5. OMEGA 3 SUPPLEMENT [Concomitant]
     Indication: BLOOD CHOLESTEROL ABNORMAL
     Dosage: UNKNOWN
     Route: 048
     Dates: start: 2016
  6. RAMIPRIL. [Concomitant]
     Active Substance: RAMIPRIL
     Indication: CARDIAC DISORDER
     Route: 048
     Dates: start: 2001
  7. BRILINTA [Suspect]
     Active Substance: TICAGRELOR
     Indication: THROMBOSIS
     Route: 048
     Dates: start: 20171228
  8. BABY ASPIRIN [Concomitant]
     Active Substance: ASPIRIN
     Indication: ADJUVANT THERAPY
     Route: 048
     Dates: start: 2001
  9. PANTOPRAZOLE [Concomitant]
     Active Substance: PANTOPRAZOLE
     Indication: GASTROOESOPHAGEAL REFLUX DISEASE
     Route: 048
     Dates: start: 2017
  10. COENZYME Q10 [Concomitant]
     Active Substance: UBIDECARENONE
     Indication: ADJUVANT THERAPY
     Route: 048
     Dates: start: 2016
  11. ZOLPIDEM TARTRATE. [Concomitant]
     Active Substance: ZOLPIDEM TARTRATE
     Indication: SLEEP DISORDER
     Route: 048
     Dates: start: 2010
  12. ROSUVASTATIN. [Suspect]
     Active Substance: ROSUVASTATIN
     Indication: BLOOD CHOLESTEROL ABNORMAL
     Route: 048
     Dates: start: 2013

REACTIONS (3)
  - Myocardial infarction [Unknown]
  - Sleep apnoea syndrome [Not Recovered/Not Resolved]
  - Dyspnoea [Not Recovered/Not Resolved]

NARRATIVE: CASE EVENT DATE: 2001
